FAERS Safety Report 11093306 (Version 1)
Quarter: 2015Q2

REPORT INFORMATION
  Report Type: Spontaneous
  Country: US (occurrence: US)
  Receive Date: 20150506
  Receipt Date: 20150506
  Transmission Date: 20150821
  Serious: Yes (Other)
  Sender: FDA-Public Use
  Company Number: US-PFIZER INC-2015150298

PATIENT
  Age: 59 Year
  Sex: Female

DRUGS (10)
  1. XANAX [Suspect]
     Active Substance: ALPRAZOLAM
     Indication: ANXIETY
     Dosage: UNK
  2. BACLOFEN. [Concomitant]
     Active Substance: BACLOFEN
     Indication: ANALGESIC THERAPY
     Dosage: 10 MG, 2X/DAY
  3. XANAX [Suspect]
     Active Substance: ALPRAZOLAM
     Indication: NERVOUSNESS
  4. PREMARIN [Suspect]
     Active Substance: ESTROGENS, CONJUGATED
     Indication: PAIN
  5. FENOFIBRATE. [Concomitant]
     Active Substance: FENOFIBRATE
     Dosage: 150 MG, 1X/DAY
  6. PRAVASTATIN [Concomitant]
     Active Substance: PRAVASTATIN\PRAVASTATIN SODIUM
     Dosage: 20 MG, 1X/DAY (EVERY NIGHT)
  7. XANAX [Suspect]
     Active Substance: ALPRAZOLAM
     Indication: FEAR
  8. XANAX [Suspect]
     Active Substance: ALPRAZOLAM
     Indication: TREMOR
  9. PREMARIN [Suspect]
     Active Substance: ESTROGENS, CONJUGATED
     Indication: REPRODUCTIVE TRACT DISORDER
     Dosage: UNK
  10. METOPROLOL [Concomitant]
     Active Substance: METOPROLOL
     Indication: BLOOD PRESSURE ABNORMAL
     Dosage: 50 MG ONE AND A HALF, 2X/DAY

REACTIONS (12)
  - Cardiac disorder [Unknown]
  - Uterine disorder [Unknown]
  - Road traffic accident [Unknown]
  - Memory impairment [Unknown]
  - Drug ineffective [Unknown]
  - Sleep disorder [Unknown]
  - Fibromyalgia [Unknown]
  - Social phobia [Unknown]
  - Cerebrovascular accident [Unknown]
  - Arthritis [Unknown]
  - Panic attack [Unknown]
  - Asthma [Unknown]
